FAERS Safety Report 6041654-6 (Version None)
Quarter: 2009Q1

REPORT INFORMATION
  Report Type: 
  Country: None (occurrence: None)
  Receive Date: 20090116
  Receipt Date: 20081030
  Transmission Date: 20090719
  Serious: No
  Sender: FDA-Public Use
  Company Number: US-BRISTOL-MYERS SQUIBB COMPANY-14389241

PATIENT
  Age: 53 Year
  Sex: Female
  Weight: 68 kg

DRUGS (7)
  1. ABILIFY [Suspect]
     Indication: BIPOLAR DISORDER
     Dates: start: 20080701
  2. CELEXA [Suspect]
     Indication: BIPOLAR DISORDER
  3. WELLBUTRIN [Concomitant]
  4. HYDROCODONE BITARTRATE [Concomitant]
  5. FLEXERIL [Concomitant]
  6. ESTRATEST [Concomitant]
  7. TRAZODONE HCL [Concomitant]

REACTIONS (1)
  - HALLUCINATION, VISUAL [None]
